FAERS Safety Report 5754322-2 (Version None)
Quarter: 2008Q2

REPORT INFORMATION
  Report Type: 
  Country: None (occurrence: None)
  Receive Date: 20080530
  Receipt Date: 20070927
  Transmission Date: 20081010
  Serious: No
  Sender: FDA-Public Use
  Company Number: US-ABBOTT-07P-163-0419141-00

PATIENT
  Sex: Male
  Weight: 79.904 kg

DRUGS (3)
  1. GENGRAF [Suspect]
     Indication: RENAL TRANSPLANT
     Route: 048
     Dates: start: 20070101
  2. GENGRAF [Suspect]
  3. GENGRAF 25MG [Suspect]
     Indication: RENAL TRANSPLANT
     Dates: start: 20070101

REACTIONS (1)
  - DRUG LEVEL DECREASED [None]
